FAERS Safety Report 4337369-2 (Version None)
Quarter: 2004Q2

REPORT INFORMATION
  Report Type: 
  Country: None (occurrence: None)
  Receive Date: 20040413
  Receipt Date: 20040405
  Transmission Date: 20050107
  Serious: Yes (Other)
  Sender: FDA-Public Use
  Company Number: 200413917GDDC

PATIENT
  Age: 77 Year
  Sex: Female

DRUGS (6)
  1. DAUNORUBICIN [Suspect]
     Dates: start: 20040101
  2. VINCRISTINE [Suspect]
     Dates: start: 20040101
  3. METHOTREXATE [Suspect]
     Dates: start: 20040201
  4. CYTARABINE [Suspect]
     Dates: start: 20040301
  5. CYCLOPHOSPHAMIDE [Suspect]
     Dates: start: 20040201
  6. ASPARAGINASE [Suspect]
     Dates: start: 20040201

REACTIONS (1)
  - CEREBROVASCULAR ACCIDENT [None]
